FAERS Safety Report 7633452-4 (Version None)
Quarter: 2011Q3

REPORT INFORMATION
  Report Type: 
  Country: None (occurrence: None)
  Receive Date: 20110725
  Receipt Date: 20110210
  Transmission Date: 20111222
  Serious: Yes (Other)
  Sender: FDA-Public Use
  Company Number: PR-BRISTOL-MYERS SQUIBB COMPANY-15543473

PATIENT
  Age: 73 Year
  Sex: Female

DRUGS (1)
  1. SPRYCEL [Suspect]
     Dosage: 3RD DOSE 50MG

REACTIONS (5)
  - DYSPNOEA [None]
  - SWELLING FACE [None]
  - LOCALISED OEDEMA [None]
  - CHOKING SENSATION [None]
  - SUFFOCATION FEELING [None]
